FAERS Safety Report 10685903 (Version 4)
Quarter: 2015Q1

REPORT INFORMATION
  Report Type: Spontaneous
  Country: JP (occurrence: JP)
  Receive Date: 20141231
  Receipt Date: 20150129
  Transmission Date: 20150720
  Serious: Yes (Hospitalization)
  Sender: FDA-Public Use
  Company Number: JP-PFIZER INC-2014357607

PATIENT

DRUGS (2)
  1. PENTAGIN [Suspect]
     Active Substance: PENTAZOCINE HYDROCHLORIDE
     Indication: ANALGESIC THERAPY
     Dosage: 15 MG-60 MG/DAY
     Route: 064
  2. ATARAX-P [Suspect]
     Active Substance: HYDROXYZINE HYDROCHLORIDE
     Indication: ANALGESIC THERAPY
     Dosage: 25 MG, DAILY
     Route: 064

REACTIONS (2)
  - Maternal exposure during delivery [Recovered/Resolved]
  - Respiratory disorder neonatal [Recovered/Resolved]

NARRATIVE: CASE EVENT DATE: 2014
